FAERS Safety Report 16295386 (Version 1)
Quarter: 2019Q2

REPORT INFORMATION
  Report Type: Spontaneous
  Country: CN (occurrence: CN)
  Receive Date: 20190509
  Receipt Date: 20190509
  Transmission Date: 20190711
  Serious: Yes (Other)
  Sender: FDA-Public Use
  Company Number: CN-ROCHE-2313745

PATIENT
  Age: 32 Year
  Sex: Female

DRUGS (2)
  1. HERCEPTIN [Suspect]
     Active Substance: TRASTUZUMAB
     Indication: GASTRIC CANCER
     Dosage: DAY1
     Route: 041
     Dates: start: 20180101
  2. HERCEPTIN [Suspect]
     Active Substance: TRASTUZUMAB
     Dosage: DAY1
     Route: 041
     Dates: start: 20180101

REACTIONS (3)
  - Gastric cancer recurrent [Unknown]
  - Ascites [Unknown]
  - Metastatic neoplasm [Unknown]
